FAERS Safety Report 11556444 (Version 1)
Quarter: 2015Q3

REPORT INFORMATION
  Report Type: Spontaneous
  Country: BR (occurrence: BR)
  Receive Date: 20150925
  Receipt Date: 20150925
  Transmission Date: 20151125
  Serious: Yes (Other)
  Sender: FDA-Public Use
  Company Number: BR-GLAXOSMITHKLINE-BR2015GSK135011

PATIENT
  Age: 58 Year
  Sex: Male

DRUGS (2)
  1. ANTAK [Suspect]
     Active Substance: RANITIDINE HYDROCHLORIDE
     Indication: GENITAL DISCOMFORT
  2. ANTAK [Suspect]
     Active Substance: RANITIDINE HYDROCHLORIDE
     Indication: DYSPEPSIA
     Dosage: UNK
     Route: 065
     Dates: start: 201303

REACTIONS (7)
  - Abdominal discomfort [Not Recovered/Not Resolved]
  - Skin haemorrhage [Unknown]
  - Off label use [Unknown]
  - Metastases to lung [Unknown]
  - Impaired healing [Not Recovered/Not Resolved]
  - Drug effect decreased [Unknown]
  - Oral pain [Unknown]

NARRATIVE: CASE EVENT DATE: 201303
